FAERS Safety Report 4488095-0 (Version None)
Quarter: 2004Q4

REPORT INFORMATION
  Report Type: 
  Country: None (occurrence: None)
  Receive Date: 20041028
  Receipt Date: 20041022
  Transmission Date: 20050328
  Serious: Yes (Hospitalization)
  Sender: FDA-Public Use
  Company Number: PT-GLAXOSMITHKLINE-B0349486A

PATIENT
  Age: 53 Year
  Sex: Female

DRUGS (4)
  1. LAMICTAL [Suspect]
     Indication: BIPOLAR DISORDER
     Dosage: 200MG PER DAY
     Route: 048
     Dates: start: 20030715
  2. RISPERIDONE [Concomitant]
     Dosage: 1MG PER DAY
  3. ESCITALOPRAM OXALATE [Concomitant]
     Dosage: 20MG PER DAY
  4. BROMAZEPAN [Concomitant]
     Dosage: 21MG PER DAY

REACTIONS (4)
  - ASTHENIA [None]
  - LUPUS-LIKE SYNDROME [None]
  - PERICARDIAL EFFUSION [None]
  - RESPIRATORY DISORDER [None]
